FAERS Safety Report 10152476 (Version 1)
Quarter: 2014Q2

REPORT INFORMATION
  Report Type: Spontaneous
  Country: DK (occurrence: FR)
  Receive Date: 20140505
  Receipt Date: 20140505
  Transmission Date: 20141212
  Serious: Yes (Hospitalization)
  Sender: FDA-Public Use
  Company Number: FR-FRI-1000066977

PATIENT
  Age: 87 Year
  Sex: Female

DRUGS (9)
  1. ESCITALOPRAM [Suspect]
     Indication: DEPRESSION
     Dosage: 20 MG
     Route: 048
     Dates: start: 201402, end: 20140324
  2. OLANZAPINE MYLAN [Suspect]
     Indication: PRODUCT USED FOR UNKNOWN INDICATION
     Dosage: 15 MG
     Dates: start: 201402, end: 20140324
  3. DIFFU K [Concomitant]
  4. KEPPRA [Concomitant]
  5. LASILIX [Concomitant]
  6. INEXIUM [Concomitant]
  7. LEVOTHYROX [Concomitant]
  8. KARDEGIC [Concomitant]
  9. BISOPROLOL [Concomitant]

REACTIONS (1)
  - Generalised tonic-clonic seizure [Recovered/Resolved]
